FAERS Safety Report 4579684-3 (Version None)
Quarter: 2005Q1

REPORT INFORMATION
  Report Type: 
  Country: None (occurrence: None)
  Receive Date: 20050210
  Receipt Date: 20050204
  Transmission Date: 20050727
  Serious: Yes (Hospitalization)
  Sender: FDA-Public Use
  Company Number: KII-2005-0015046

PATIENT
  Age: 52 Year
  Sex: Male

DRUGS (4)
  1. OXYCONTIN [Suspect]
     Indication: PAIN
     Dosage: ORAL
     Route: 048
  2. BENZODIAZEPINE DERIVATIVES [Suspect]
  3. ACETAMINOPHEN AND HYDROCODONE BITARTRATE [Concomitant]
  4. TRAZODONE (TRAZODONE) [Concomitant]

REACTIONS (5)
  - DRUG SCREEN POSITIVE [None]
  - FALL [None]
  - INADEQUATE ANALGESIA [None]
  - OVERDOSE [None]
  - SOMNOLENCE [None]
